FAERS Safety Report 9443487 (Version 1)
Quarter: 2013Q3

REPORT INFORMATION
  Report Type: Spontaneous
  Country: US (occurrence: US)
  Receive Date: 20130806
  Receipt Date: 20130806
  Transmission Date: 20140515
  Serious: Yes (Hospitalization)
  Sender: FDA-Public Use
  Company Number: CHPA2013US012165

PATIENT
  Sex: Female

DRUGS (1)
  1. GAS-X EXTSTR CHEWABLE TABS CHERRY CREME [Suspect]
     Dosage: UNK, UNK
     Route: 048

REACTIONS (1)
  - Blood calcium increased [Recovering/Resolving]
